FAERS Safety Report 15664675 (Version 2)
Quarter: 2018Q4

REPORT INFORMATION
  Report Type: Spontaneous
  Country: FR (occurrence: FR)
  Receive Date: 20181128
  Receipt Date: 20181225
  Transmission Date: 20190205
  Serious: Yes (Hospitalization)
  Sender: FDA-Public Use
  Company Number: FR-ACCORD-093702

PATIENT
  Age: 62 Year
  Sex: Male

DRUGS (10)
  1. CARBOPLATIN. [Suspect]
     Active Substance: CARBOPLATIN
     Indication: PROSTATE CANCER METASTATIC
     Dosage: TIME OF LAST ADMINISTRATION:SEP-2017
     Route: 042
  2. XGEVA [Concomitant]
     Active Substance: DENOSUMAB
  3. CABAZITAXEL [Concomitant]
     Active Substance: CABAZITAXEL
  4. CASODEX [Concomitant]
     Active Substance: BICALUTAMIDE
  5. ETOPOSIDE. [Suspect]
     Active Substance: ETOPOSIDE
     Indication: PROSTATE CANCER METASTATIC
     Dosage: TIME OF LAST ADMINISTRATION:SEP-2017
     Route: 042
  6. XOFIGO [Suspect]
     Active Substance: RADIUM RA-223 DICHLORIDE
     Indication: PROSTATE CANCER METASTATIC
     Route: 042
  7. TAXOTERE [Concomitant]
     Active Substance: DOCETAXEL
  8. XTANDI [Concomitant]
     Active Substance: ENZALUTAMIDE
  9. ZYTIGA [Concomitant]
     Active Substance: ABIRATERONE ACETATE
  10. ELIGARD [Concomitant]
     Active Substance: LEUPROLIDE ACETATE

REACTIONS (2)
  - Myelodysplastic syndrome [Not Recovered/Not Resolved]
  - Off label use [Unknown]

NARRATIVE: CASE EVENT DATE: 201710
